FAERS Safety Report 11591462 (Version 1)
Quarter: 2015Q4

REPORT INFORMATION
  Report Type: Spontaneous
  Country: US (occurrence: US)
  Receive Date: 20151005
  Receipt Date: 20151005
  Transmission Date: 20160304
  Serious: No
  Sender: FDA-Public Use
  Company Number: US-NOVEN PHARMACEUTICALS, INC.-14US010425

PATIENT

DRUGS (2)
  1. COMBIPATCH [Suspect]
     Active Substance: ESTRADIOL\NORETHINDRONE ACETATE
     Dosage: 50MCG/250MCG/DAY, 1/WEEK
     Route: 062
     Dates: start: 2014
  2. COMBIPATCH [Suspect]
     Active Substance: ESTRADIOL\NORETHINDRONE ACETATE
     Indication: OESTROGEN REPLACEMENT THERAPY
     Dosage: 50MCG/250MCG/DAY, 1/WEEK
     Route: 062
     Dates: start: 2014

REACTIONS (6)
  - Wrong technique in product usage process [Recovered/Resolved]
  - Drug dose omission [Not Recovered/Not Resolved]
  - Incorrect drug administration duration [Not Recovered/Not Resolved]
  - Application site irritation [Unknown]
  - Inappropriate schedule of drug administration [Not Recovered/Not Resolved]
  - Product quality issue [Not Recovered/Not Resolved]

NARRATIVE: CASE EVENT DATE: 2014
